FAERS Safety Report 9381802 (Version 1)
Quarter: 2013Q3

REPORT INFORMATION
  Report Type: Report from Study
  Country: FR (occurrence: FR)
  Receive Date: 20130703
  Receipt Date: 20130703
  Transmission Date: 20140515
  Serious: Yes (Death)
  Sender: FDA-Public Use
  Company Number: FR-CELGENEUS-056-C4047-13064373

PATIENT
  Sex: Female
  Weight: 60 kg

DRUGS (5)
  1. CC-4047 [Suspect]
     Indication: PLASMA CELL MYELOMA
     Dosage: 4 MILLIGRAM
     Route: 048
     Dates: start: 20130416, end: 20130527
  2. DEXAMETHASONE [Concomitant]
     Indication: PLASMA CELL MYELOMA
     Dosage: 4 DAYS
     Route: 065
     Dates: start: 20130416
  3. DEXAMETHASONE [Concomitant]
     Dosage: 4 DAYS/MONTH
     Route: 065
  4. KARDEGIC [Concomitant]
     Indication: THROMBOSIS PROPHYLAXIS
     Dosage: 160 MILLIGRAM
     Route: 065
  5. KARDEGIC [Concomitant]
     Dosage: 75 MILLIGRAM
     Route: 065

REACTIONS (1)
  - Septic shock [Fatal]
